FAERS Safety Report 6965624-6 (Version None)
Quarter: 2010Q3

REPORT INFORMATION
  Report Type: 
  Country: None (occurrence: None)
  Receive Date: 20100903
  Receipt Date: 20100827
  Transmission Date: 20110219
  Serious: Yes (Hospitalization, Other)
  Sender: FDA-Public Use
  Company Number: US-B.I. PHARMACEUTICALS,INC./RIDGEFIELD-2010-BP-07454BP

PATIENT
  Sex: Female
  Weight: 106.2 kg

DRUGS (19)
  1. MOBIC [Suspect]
     Indication: RHEUMATOID ARTHRITIS
     Dosage: 15 MG
     Route: 048
     Dates: start: 20051019, end: 20100418
  2. BLIND (CP-690, 550) [Suspect]
     Indication: RHEUMATOID ARTHRITIS
     Dates: start: 20091008, end: 20100418
  3. FOLIC ACID [Concomitant]
     Indication: RHEUMATOID ARTHRITIS
     Dosage: 1 MG
     Route: 048
     Dates: start: 20050101
  4. ARAVA [Concomitant]
     Indication: RHEUMATOID ARTHRITIS
     Dosage: 20 MG
     Route: 048
     Dates: start: 20051130
  5. SULFAZINE [Concomitant]
     Indication: RHEUMATOID ARTHRITIS
     Dosage: 1000 MG
     Route: 048
     Dates: start: 19990624
  6. PREDNISONE [Concomitant]
     Indication: RHEUMATOID ARTHRITIS
     Dosage: 7.5 MG
     Route: 048
     Dates: start: 20050222
  7. CENTRUM SILVER [Concomitant]
     Indication: MEDICAL DIET
     Dosage: ONE TAB DAILY
     Route: 048
     Dates: start: 20000101
  8. CALCIUM WITH VITAMIN D [Concomitant]
     Indication: OSTEOPENIA
     Dosage: 600 MG
     Route: 048
     Dates: start: 19990513
  9. ESTROVEN [Concomitant]
     Indication: HORMONE REPLACEMENT THERAPY
     Dosage: ONE TAB DAILY
     Route: 048
     Dates: start: 20050101
  10. HAIR FORMULA [Concomitant]
     Indication: SUPPLEMENTATION THERAPY
     Dosage: ONE TAB DAILY
     Route: 048
     Dates: start: 20090801
  11. BONIVA [Concomitant]
     Indication: OSTEOPENIA
     Dosage: ONE TAB MONTHLY
     Route: 048
     Dates: start: 20050727
  12. LORTAB [Concomitant]
     Indication: RHEUMATOID ARTHRITIS
     Dosage: 7.5 MG
     Route: 048
     Dates: start: 20100113, end: 20100113
  13. ACETAMINOPHEN [Concomitant]
     Indication: RHEUMATOID ARTHRITIS
     Dosage: 1000 MG
     Route: 048
     Dates: start: 20100208, end: 20100208
  14. VITAMIN D [Concomitant]
     Dosage: ONE TAB DAILY
  15. TYLENOL-500 [Concomitant]
     Dosage: ONE TAB DAILY, PRN
     Route: 048
  16. AMLODIPINE [Concomitant]
     Dosage: 5 MG
     Route: 048
  17. DICYCLOMINE [Concomitant]
     Dosage: ONE CAPSULE DAILY
     Route: 048
  18. HYDROCODONE [Concomitant]
     Dosage: ONE TAB BID, PRN
     Route: 048
  19. SIMVASTATIN [Concomitant]
     Dosage: 20 MG CS

REACTIONS (10)
  - ASTHENIA [None]
  - BLOOD CREATININE INCREASED [None]
  - CAROTID ARTERY STENOSIS [None]
  - FIBRIN D DIMER INCREASED [None]
  - FIBULA FRACTURE [None]
  - HYPERTENSION [None]
  - LEFT VENTRICULAR HYPERTROPHY [None]
  - OSTEOPOROSIS [None]
  - RENAL FAILURE ACUTE [None]
  - SYNCOPE [None]
